FAERS Safety Report 4763169-5 (Version None)
Quarter: 2005Q3

REPORT INFORMATION
  Report Type: 
  Country: None (occurrence: None)
  Receive Date: 20050902
  Receipt Date: 20050819
  Transmission Date: 20060218
  Serious: Yes (Life-Threatening)
  Sender: FDA-Public Use
  Company Number: 12201

PATIENT
  Age: 42 Year
  Sex: Female

DRUGS (5)
  1. FLUOROURACIL [Suspect]
  2. METHOTREXATE [Suspect]
     Indication: BREAST CANCER
     Dates: start: 19890101
  3. ADRIBLASTINE [Suspect]
     Indication: BREAST CANCER
     Dates: start: 19890101
  4. ONCOVIN [Suspect]
     Indication: BREAST CANCER
     Dates: start: 19890101
  5. ENDOXAN [Suspect]
     Indication: BREAST CANCER
     Dates: start: 19890101

REACTIONS (5)
  - DRUG EXPOSURE DURING PREGNANCY [None]
  - INTRA-UTERINE DEATH [None]
  - PREGNANCY [None]
  - TALIPES [None]
  - TRISOMY 21 [None]
